FAERS Safety Report 8089052-8 (Version None)
Quarter: 2012Q1

REPORT INFORMATION
  Report Type: 
  Country: None (occurrence: None)
  Receive Date: 20120128
  Receipt Date: 20110621
  Transmission Date: 20120608
  Serious: No
  Sender: FDA-Public Use
  Company Number: US-ABBOTT-11P-163-0702858-00

PATIENT
  Sex: Female
  Weight: 81.72 kg

DRUGS (14)
  1. FLONASE [Concomitant]
     Indication: HYPERSENSITIVITY
  2. NEXIUM [Concomitant]
     Indication: GASTROOESOPHAGEAL REFLUX DISEASE
  3. MIRAPEX [Concomitant]
     Indication: FIBROMYALGIA
  4. OMEPRAZOLE [Concomitant]
     Indication: GASTROOESOPHAGEAL REFLUX DISEASE
     Dosage: 20MG DAILY
  5. PREMARIN [Concomitant]
     Indication: PRODUCT USED FOR UNKNOWN INDICATION
     Dosage: 0.9MG DAILY
  6. PRAMIPEXOLE DIHYCHLLORIDE [Concomitant]
     Indication: FIBROMYALGIA
     Dosage: 1MG DAILY
  7. HUMIRA [Suspect]
     Indication: CROHN'S DISEASE
     Dosage: DAY ONE
     Route: 058
     Dates: start: 20110127, end: 20110127
  8. HUMIRA [Suspect]
     Dates: start: 20110128
  9. BUSPAR [Concomitant]
     Indication: POST-TRAUMATIC STRESS DISORDER
     Dosage: 15 MG DAILY
  10. LEVOTHYROXINE SODIUM [Concomitant]
     Indication: HYPOTHYROIDISM
     Dosage: 50MCG DAILY
  11. ZOLOFT [Concomitant]
     Indication: POST-TRAUMATIC STRESS DISORDER
  12. VITAMIN D [Concomitant]
     Indication: PRODUCT USED FOR UNKNOWN INDICATION
     Dosage: 5000 UNITS DAILY
  13. PROAIR HFA [Concomitant]
     Indication: HYPERSENSITIVITY
     Route: 055
  14. ZOLOFT [Concomitant]
     Indication: MOOD SWINGS

REACTIONS (5)
  - INJECTION SITE INJURY [None]
  - GINGIVAL DISCOLOURATION [None]
  - SCRATCH [None]
  - WRONG TECHNIQUE IN DRUG USAGE PROCESS [None]
  - INJECTION SITE PAIN [None]
